FAERS Safety Report 19044336 (Version 1)
Quarter: 2021Q1

REPORT INFORMATION
  Report Type: Spontaneous
  Country: TN (occurrence: TN)
  Receive Date: 20210323
  Receipt Date: 20210323
  Transmission Date: 20210420
  Serious: Yes (Hospitalization, Other)
  Sender: FDA-Public Use
  Company Number: TN-UNICHEM PHARMACEUTICALS (USA) INC-UCM202103-000253

PATIENT
  Age: 49 Year
  Sex: Male

DRUGS (2)
  1. LAMOTRIGINE. [Suspect]
     Active Substance: LAMOTRIGINE
     Indication: EPILEPSY
     Dosage: UNKNOWN
  2. DIVALPROEX SODIUM. [Suspect]
     Active Substance: DIVALPROEX SODIUM
     Indication: EPILEPSY

REACTIONS (5)
  - Drug interaction [Unknown]
  - Paradoxical drug reaction [Recovered/Resolved]
  - Drug reaction with eosinophilia and systemic symptoms [Recovered/Resolved]
  - Purpura [Recovered/Resolved]
  - Oedema peripheral [Recovered/Resolved]
